FAERS Safety Report 16962483 (Version 5)
Quarter: 2020Q1

REPORT INFORMATION
  Report Type: Spontaneous
  Country: AU (occurrence: AU)
  Receive Date: 20191025
  Receipt Date: 20200327
  Transmission Date: 20200409
  Serious: Yes (Death, Hospitalization, Other)
  Sender: FDA-Public Use
  Company Number: AU-ACTELION-A-CH2019-197263

PATIENT
  Age: 74 Year
  Sex: Female
  Weight: 57.9 kg

DRUGS (19)
  1. PANADOL [Concomitant]
     Active Substance: ACETAMINOPHEN
     Dosage: 1 DF, TID
  2. OPSUMIT [Suspect]
     Active Substance: MACITENTAN
     Indication: PULMONARY ARTERIAL HYPERTENSION
     Dosage: 10 MG, QD
     Route: 048
     Dates: start: 20160509
  3. MORPHINE [Concomitant]
     Active Substance: MORPHINE
  4. RECTOGESIC [Concomitant]
     Route: 003
  5. SALBUTAMOL [Concomitant]
     Active Substance: ALBUTEROL
     Dosage: 6 DF, TID
  6. THYROXINE [Concomitant]
     Active Substance: LEVOTHYROXINE
     Dosage: 150 MCG, OD
  7. SYMBICORT [Concomitant]
     Active Substance: BUDESONIDE\FORMOTEROL FUMARATE DIHYDRATE
     Dosage: 2 DF, BID
  8. DENOSUMAB [Concomitant]
     Active Substance: DENOSUMAB
     Dosage: 1 INJECTION EVERY 6 MONTHS
  9. FRUSEMIDE [Concomitant]
     Active Substance: FUROSEMIDE
     Dosage: 40 MG, BID
  10. PANAFCORTELONE [Concomitant]
     Active Substance: PREDNISOLONE
     Indication: SCLERODERMA
     Dosage: 1 DF, OD
  11. ILOPROST. [Suspect]
     Active Substance: ILOPROST
     Indication: PULMONARY ARTERIAL HYPERTENSION
     Dosage: 5 MG, 6-9 TIME A DAY
     Route: 055
     Dates: start: 20181115
  12. PROZAC [Concomitant]
     Active Substance: FLUOXETINE HYDROCHLORIDE
     Dosage: 1 DF
  13. HYDROXYCHLOROQUINE [Concomitant]
     Active Substance: HYDROXYCHLOROQUINE
     Dosage: 1 DF, OD
  14. OXYGEN. [Concomitant]
     Active Substance: OXYGEN
     Dosage: 2 L
  15. TADALAFIL. [Suspect]
     Active Substance: TADALAFIL
     Indication: PULMONARY ARTERIAL HYPERTENSION
     Dosage: 20 MG, BID
     Route: 048
     Dates: start: 20181115
  16. INFLUENZA VACCINE [Concomitant]
     Active Substance: INFLUENZA VIRUS VACCINE
  17. PNEUMOCOCCAL VACCINE POLYVALENT [Concomitant]
     Active Substance: PNEUMOCOCCAL VACCINE POLYVALENT
  18. LUMIGAN [Concomitant]
     Active Substance: BIMATOPROST
     Dosage: 1 DROP, OD
  19. COLOXYL WITH SENNA [Concomitant]
     Active Substance: DOCUSATE SODIUM\SENNOSIDES A AND B
     Dosage: 1 DF, BID

REACTIONS (35)
  - Pneumonia aspiration [Recovering/Resolving]
  - Pulmonary oedema [Unknown]
  - Abdominal pain upper [Unknown]
  - Hemiparesis [Unknown]
  - Blood iron decreased [Unknown]
  - Cardiac failure congestive [Unknown]
  - Parainfluenzae virus infection [Unknown]
  - Systolic dysfunction [Unknown]
  - Dyspnoea [Unknown]
  - Iron deficiency anaemia [Unknown]
  - Transferrin saturation decreased [Unknown]
  - Fluid overload [Unknown]
  - Blood thyroid stimulating hormone increased [Unknown]
  - Pleural effusion [Unknown]
  - Death [Fatal]
  - Upper gastrointestinal haemorrhage [Unknown]
  - Right ventricular dilatation [Unknown]
  - Fatigue [Unknown]
  - Bundle branch block [Unknown]
  - Urinary tract infection [Unknown]
  - Hepatic congestion [Unknown]
  - Cerebrovascular accident [Unknown]
  - Haemoglobin decreased [Unknown]
  - Oedema [Unknown]
  - Ascites [Unknown]
  - Aphasia [Unknown]
  - Fall [Unknown]
  - Facial paralysis [Unknown]
  - Transfusion [Unknown]
  - Dysphagia [Unknown]
  - Oxygen saturation decreased [Unknown]
  - Liver disorder [Unknown]
  - Abdominal pain lower [Unknown]
  - Melaena [Unknown]
  - Extrasystoles [Unknown]

NARRATIVE: CASE EVENT DATE: 201908
